FAERS Safety Report 16883839 (Version 9)
Quarter: 2022Q1

REPORT INFORMATION
  Report Type: Spontaneous
  Country: US (occurrence: US)
  Receive Date: 20191004
  Receipt Date: 20220308
  Transmission Date: 20220423
  Serious: Yes (Other)
  Sender: FDA-Public Use
  Company Number: US-PFIZER INC-2019427071

PATIENT
  Age: 66 Year
  Sex: Male
  Weight: 80.726 kg

DRUGS (3)
  1. VYNDAQEL [Suspect]
     Active Substance: TAFAMIDIS MEGLUMINE
     Indication: Amyloidosis senile
     Dosage: 80 MG, DAILY
     Route: 048
     Dates: start: 20190801
  2. VYNDAQEL [Suspect]
     Active Substance: TAFAMIDIS MEGLUMINE
     Indication: Amyloidosis
  3. VYNDAQEL [Suspect]
     Active Substance: TAFAMIDIS MEGLUMINE
     Indication: Cardiac amyloidosis

REACTIONS (42)
  - Skin cancer [Unknown]
  - Nephropathy [Unknown]
  - Cardiac failure congestive [Unknown]
  - Condition aggravated [Unknown]
  - Hypokalaemia [Unknown]
  - Disease recurrence [Unknown]
  - Neuropathy peripheral [Unknown]
  - Bradycardia [Recovered/Resolved]
  - Intentional product use issue [Not Recovered/Not Resolved]
  - Gout [Unknown]
  - Carpal tunnel syndrome [Not Recovered/Not Resolved]
  - Memory impairment [Unknown]
  - Weight decreased [Not Recovered/Not Resolved]
  - Asthenia [Not Recovered/Not Resolved]
  - Muscle atrophy [Not Recovered/Not Resolved]
  - Pain [Not Recovered/Not Resolved]
  - Discomfort [Not Recovered/Not Resolved]
  - Asthenia [Not Recovered/Not Resolved]
  - Dizziness [Not Recovered/Not Resolved]
  - Condition aggravated [Not Recovered/Not Resolved]
  - Visual impairment [Unknown]
  - Hypoacusis [Unknown]
  - Joint swelling [Unknown]
  - Burning sensation [Unknown]
  - Gait disturbance [Unknown]
  - Balance disorder [Unknown]
  - Loss of personal independence in daily activities [Unknown]
  - Feeling of despair [Unknown]
  - Micturition urgency [Not Recovered/Not Resolved]
  - Urinary hesitation [Not Recovered/Not Resolved]
  - Dysphonia [Unknown]
  - Mastication disorder [Unknown]
  - Peripheral swelling [Unknown]
  - Back pain [Unknown]
  - Orthostatic hypotension [Unknown]
  - Muscle disorder [Unknown]
  - Sinus arrhythmia [Unknown]
  - Bundle branch block left [Unknown]
  - Cardiac output decreased [Unknown]
  - Fatigue [Unknown]
  - Weight fluctuation [Unknown]
  - Oedema [Unknown]

NARRATIVE: CASE EVENT DATE: 20190101
